FAERS Safety Report 11993346 (Version 1)
Quarter: 2016Q1

REPORT INFORMATION
  Report Type: Spontaneous
  Country: JP (occurrence: JP)
  Receive Date: 20160203
  Receipt Date: 20160203
  Transmission Date: 20160526
  Serious: Yes (Hospitalization)
  Sender: FDA-Public Use
  Company Number: JP-ASTRAZENECA-2016SE10331

PATIENT
  Age: 79 Year
  Sex: Female

DRUGS (4)
  1. INSULIN GLULISINE [Concomitant]
     Active Substance: INSULIN GLULISINE
  2. FORXIGA [Suspect]
     Active Substance: DAPAGLIFLOZIN
     Indication: TYPE 1 DIABETES MELLITUS
     Route: 048
     Dates: start: 201508
  3. INSULIN GLULISINE [Concomitant]
     Active Substance: INSULIN GLULISINE
     Dosage: DOSE UNKNOWN (WHEN BLOOD GLUCOSE LEVEL WAS 300 MG/DL OR HIGHER)
     Route: 058
  4. ANTIDIABETIC AGENTS [Concomitant]
     Active Substance: UNSPECIFIED INGREDIENT
     Indication: DIABETES MELLITUS INADEQUATE CONTROL
     Dosage: DOSE UNKNOWN
     Route: 048
     Dates: start: 201505

REACTIONS (2)
  - Diabetic ketoacidosis [Recovered/Resolved]
  - Product use issue [Unknown]
